FAERS Safety Report 4928179-3 (Version None)
Quarter: 2006Q1

REPORT INFORMATION
  Report Type: 
  Country: None (occurrence: None)
  Receive Date: 20060223
  Receipt Date: 20060131
  Transmission Date: 20060701
  Serious: Yes (Hospitalization)
  Sender: FDA-Public Use
  Company Number: DE200601004923

PATIENT
  Age: 51 Year
  Sex: Female

DRUGS (1)
  1. YENTREVE(DULOXETINE HYDROCHLORIDE) CAPSULE [Suspect]
     Indication: STRESS INCONTINENCE

REACTIONS (11)
  - BRONCHITIS ACUTE [None]
  - CHEST PAIN [None]
  - CHILLS [None]
  - ENDOMETRIAL HYPERPLASIA [None]
  - GASTRITIS [None]
  - HAEMOGLOBIN DECREASED [None]
  - HEPATIC STEATOSIS [None]
  - POSTMENOPAUSAL HAEMORRHAGE [None]
  - PSYCHOSOMATIC DISEASE [None]
  - SINUS TACHYCARDIA [None]
  - SINUSITIS [None]
